FAERS Safety Report 8921925 (Version 1)
Quarter: 2012Q4

REPORT INFORMATION
  Report Type: Spontaneous
  Country: US (occurrence: None)
  Receive Date: 20121119
  Receipt Date: 20121119
  Transmission Date: 20130627
  Serious: Yes (Life-Threatening)
  Sender: FDA-Public Use
  Company Number: None

PATIENT
  Age: 15 Year
  Sex: Male
  Weight: 78.02 kg

DRUGS (1)
  1. CARBAMAZEPINE ER [Suspect]
     Indication: CONVULSION DISORDER
     Dosage: 1 TAB am
2 TAB  2 AM 
1 tab 
INDEFINITELY

REACTIONS (2)
  - Product substitution issue [None]
  - Convulsion [None]
